FAERS Safety Report 24859641 (Version 1)
Quarter: 2025Q1

REPORT INFORMATION
  Report Type: Spontaneous
  Country: GB (occurrence: GB)
  Receive Date: 20250119
  Receipt Date: 20250119
  Transmission Date: 20250409
  Serious: Yes (Other)
  Sender: Unknown Manufacturer
  Company Number: GB-MHRA-TPP25043389C7760172YC1736344178757

PATIENT
  Age: 58 Year
  Sex: Male
  Weight: 118 kg

DRUGS (3)
  1. ATORVASTATIN CALCIUM [Suspect]
     Active Substance: ATORVASTATIN CALCIUM
     Indication: Product used for unknown indication
     Dosage: AIM NON-HDL { 2.6 / LDL { 2.0
     Dates: start: 20241016
  2. CANDESARTAN [Concomitant]
     Active Substance: CANDESARTAN
     Indication: Product used for unknown indication
     Dates: start: 20240309
  3. ROSUVASTATIN [Concomitant]
     Active Substance: ROSUVASTATIN
     Indication: Product used for unknown indication
     Dates: start: 20241221

REACTIONS (1)
  - Headache [Recovered/Resolved]
